FAERS Safety Report 7371394-2 (Version None)
Quarter: 2011Q1

REPORT INFORMATION
  Report Type: 
  Country: None (occurrence: None)
  Receive Date: 20110324
  Receipt Date: 20110315
  Transmission Date: 20110831
  Serious: Yes (Hospitalization)
  Sender: FDA-Public Use
  Company Number: FR-ASTRAZENECA-2011SE14740

PATIENT
  Age: 53 Year
  Sex: Male

DRUGS (7)
  1. ISOPTIN [Suspect]
     Route: 048
  2. EFFIENT [Suspect]
  3. TAHOR [Suspect]
     Route: 048
  4. KARDEGIC [Suspect]
     Route: 048
     Dates: start: 20100801
  5. COVERSYL [Suspect]
     Route: 048
  6. ENTOCORT EC [Suspect]
     Route: 048
  7. OMACOR [Suspect]
     Route: 048

REACTIONS (1)
  - SHOCK HAEMORRHAGIC [None]
